FAERS Safety Report 23895340 (Version 1)
Quarter: 2024Q2

REPORT INFORMATION
  Report Type: Report from Study
  Country: GB (occurrence: GB)
  Receive Date: 20240524
  Receipt Date: 20240524
  Transmission Date: 20240716
  Serious: Yes (Other)
  Sender: FDA-Public Use
  Company Number: GB-002147023-NVSC2024GB096840

PATIENT
  Age: 57 Year
  Sex: Female

DRUGS (1)
  1. COSENTYX [Suspect]
     Active Substance: SECUKINUMAB
     Indication: Spinal osteoarthritis
     Dosage: 150 MG, QMO (2 PRE-FILLED DISPOSABLE INJECTION)
     Route: 058
     Dates: start: 20231023

REACTIONS (11)
  - Rheumatoid arthritis [Unknown]
  - Spinal osteoarthritis [Not Recovered/Not Resolved]
  - Eye swelling [Unknown]
  - Rash pruritic [Unknown]
  - Skin wound [Unknown]
  - Erythema of eyelid [Unknown]
  - Chest discomfort [Unknown]
  - Insomnia [Not Recovered/Not Resolved]
  - Pain [Not Recovered/Not Resolved]
  - Product use in unapproved indication [Unknown]
  - Drug ineffective [Not Recovered/Not Resolved]

NARRATIVE: CASE EVENT DATE: 20231023
